FAERS Safety Report 19406637 (Version 2)
Quarter: 2021Q2

REPORT INFORMATION
  Report Type: Spontaneous
  Country: US (occurrence: US)
  Receive Date: 20210611
  Receipt Date: 20210625
  Transmission Date: 20210717
  Serious: No
  Sender: FDA-Public Use
  Company Number: US-UNITED THERAPEUTICS-UNT-2021-010669

PATIENT
  Sex: Male

DRUGS (2)
  1. REMODULIN [Suspect]
     Active Substance: TREPROSTINIL
     Dosage: 0.057 ?G/KG, CONTINUING (AT INFUSION RATE OF 0.040 ML/HR)
     Route: 058
  2. REMODULIN [Suspect]
     Active Substance: TREPROSTINIL
     Indication: PULMONARY ARTERIAL HYPERTENSION
     Dosage: UNK, CONTINUING
     Route: 058
     Dates: start: 20201028

REACTIONS (4)
  - Infusion site swelling [Recovered/Resolved]
  - Infusion site pain [Recovered/Resolved]
  - Infusion site hypersensitivity [Recovered/Resolved]
  - Infusion site infection [Recovered/Resolved]

NARRATIVE: CASE EVENT DATE: 2021
